FAERS Safety Report 6761189-2 (Version None)
Quarter: 2010Q2

REPORT INFORMATION
  Report Type: 
  Country: None (occurrence: None)
  Receive Date: 20100602
  Receipt Date: 20071226
  Transmission Date: 20101027
  Serious: No
  Sender: FDA-Public Use
  Company Number: 2007-00016

PATIENT
  Sex: Female

DRUGS (1)
  1. ZICAM COLD REMEDY RAPIDMELTS [Suspect]
     Dosage: TID X 4 DAYS
     Dates: start: 20071219, end: 20071223

REACTIONS (2)
  - AGEUSIA [None]
  - ANOSMIA [None]
